FAERS Safety Report 15527901 (Version 3)
Quarter: 2025Q4

REPORT INFORMATION
  Report Type: Spontaneous
  Country: EU (occurrence: EU)
  Receive Date: 20181018
  Receipt Date: 20251028
  Transmission Date: 20260117
  Serious: Yes (Other)
  Sender: MYLAN
  Company Number: EU-002147023-PHHY2018ES005829

PATIENT
  Age: 56 Year
  Sex: Male

DRUGS (9)
  1. VALPROIC ACID [Interacting]
     Active Substance: VALPROIC ACID
     Indication: Product used for unknown indication
     Dosage: 300 MG, QD
  2. QUETIAPINE [Interacting]
     Active Substance: QUETIAPINE
     Indication: Product used for unknown indication
     Dosage: 100 MG, QD
  3. QUETIAPINE [Interacting]
     Active Substance: QUETIAPINE
     Dosage: 900 MG, QD
  4. PERAZINE [Interacting]
     Active Substance: PERAZINE
     Indication: Product used for unknown indication
     Dosage: UNK
  5. CLOPIDOGREL [Concomitant]
     Active Substance: CLOPIDOGREL BISULFATE
     Indication: Product used for unknown indication
     Dosage: UNK
  6. PANTOPRAZOLE [Concomitant]
     Active Substance: PANTOPRAZOLE
     Indication: Product used for unknown indication
     Dosage: UNK
  7. ASPIRIN [Concomitant]
     Active Substance: ASPIRIN
     Indication: Product used for unknown indication
     Dosage: UNK
  8. VALSARTAN AND HYDROCHLOROTHIAZIDE [Concomitant]
     Active Substance: HYDROCHLOROTHIAZIDE\VALSARTAN
     Indication: Product used for unknown indication
     Dosage: UNK
  9. RAMIPRIL [Concomitant]
     Active Substance: RAMIPRIL
     Indication: Product used for unknown indication
     Dosage: UNK

REACTIONS (6)
  - Depressed level of consciousness [Recovered/Resolved]
  - Restlessness [Recovered/Resolved]
  - Drug interaction [Unknown]
  - Prescribed overdose [Unknown]
  - Medication error [Unknown]
  - Intentional product misuse [Unknown]
